FAERS Safety Report 23896049 (Version 1)
Quarter: 2024Q2

REPORT INFORMATION
  Report Type: Spontaneous
  Country: CA (occurrence: CA)
  Receive Date: 20240524
  Receipt Date: 20240524
  Transmission Date: 20240716
  Serious: Yes (Other)
  Sender: FDA-Public Use
  Company Number: CA-PFIZER INC-PV202400015864

PATIENT
  Age: 59 Year
  Sex: Female

DRUGS (2)
  1. IBRANCE [Suspect]
     Active Substance: PALBOCICLIB
     Dosage: 125 MG, CYCLIC (21/28 DAYS)
     Dates: start: 20170417
  2. IBRANCE [Suspect]
     Active Substance: PALBOCICLIB
     Dosage: 125 MG, CYCLIC (TWICE A DAY, 21/28 DAYS)
     Route: 048
     Dates: start: 20170417

REACTIONS (3)
  - Spinal operation [Unknown]
  - Gastroenteritis [Unknown]
  - Off label use [Unknown]
